FAERS Safety Report 25639141 (Version 1)
Quarter: 2025Q3

REPORT INFORMATION
  Report Type: Report from Study
  Country: US (occurrence: US)
  Receive Date: 20250804
  Receipt Date: 20250804
  Transmission Date: 20251021
  Serious: No
  Sender: AURINIA PHARMACEUTICALS
  Company Number: US-AURINIA PHARMACEUTICALS INC.-AUR-008279

PATIENT
  Age: 29 Year
  Sex: Female

DRUGS (3)
  1. LUPKYNIS [Suspect]
     Active Substance: VOCLOSPORIN
     Indication: Lupus nephritis
     Dosage: 23.7 MILLIGRAM, BID
     Route: 048
     Dates: start: 20241001
  2. LUPKYNIS [Suspect]
     Active Substance: VOCLOSPORIN
     Dosage: 23.7 MILLIGRAM, BID
     Route: 048
     Dates: start: 20250327
  3. LUPKYNIS [Suspect]
     Active Substance: VOCLOSPORIN
     Dosage: 23.7 MILLIGRAM, BID
     Route: 048
     Dates: start: 20250328, end: 202504

REACTIONS (13)
  - Malaise [Unknown]
  - Anxiety [Unknown]
  - Depressive symptom [Unknown]
  - Insomnia [Unknown]
  - Chest pain [Unknown]
  - Dyspnoea [Unknown]
  - Palpitations [Unknown]
  - Heart rate increased [Unknown]
  - Peripheral swelling [Not Recovered/Not Resolved]
  - Back pain [Unknown]
  - Headache [Recovering/Resolving]
  - Hypertension [Not Recovered/Not Resolved]
  - Product use issue [Unknown]

NARRATIVE: CASE EVENT DATE: 20250301
